FAERS Safety Report 7945349-0 (Version None)
Quarter: 2011Q4

REPORT INFORMATION
  Report Type: 
  Country: None (occurrence: None)
  Receive Date: 20111129
  Receipt Date: 20110411
  Transmission Date: 20120403
  Serious: No
  Sender: FDA-Public Use
  Company Number: US-GLAXOSMITHKLINE-A0922448A

PATIENT
  Age: 36 Year
  Sex: Male

DRUGS (9)
  1. RITALIN [Concomitant]
  2. WELLBUTRIN SR [Suspect]
     Indication: SEASONAL AFFECTIVE DISORDER
     Dosage: 150MG TWICE PER DAY
     Route: 048
     Dates: start: 20030101, end: 20050101
  3. LAMICTAL [Concomitant]
  4. LEVOX [Concomitant]
  5. NUVIGIL [Concomitant]
  6. BUPROPION HYDROCHLORIDE [Suspect]
     Indication: SEASONAL AFFECTIVE DISORDER
     Dosage: 100MG TWICE PER DAY
     Route: 048
     Dates: start: 20101001
  7. NORVASC [Concomitant]
  8. SYNTHROID [Concomitant]
  9. ABILIFY [Concomitant]

REACTIONS (4)
  - IRRITABILITY [None]
  - RESTLESSNESS [None]
  - DECREASED APPETITE [None]
  - AGITATION [None]
